FAERS Safety Report 17236245 (Version 1)
Quarter: 2020Q1

REPORT INFORMATION
  Report Type: Spontaneous
  Country: TR (occurrence: TR)
  Receive Date: 20200106
  Receipt Date: 20200106
  Transmission Date: 20200409
  Serious: Yes (Death, Hospitalization)
  Sender: FDA-Public Use
  Company Number: TR-TEVA-2019-TR-1162917

PATIENT
  Age: 4 Decade
  Sex: Female

DRUGS (7)
  1. ETOPOSIDE. [Suspect]
     Active Substance: ETOPOSIDE
     Indication: CHLOROMA
  2. ARA-C [Suspect]
     Active Substance: CYTARABINE
     Indication: ACUTE MYELOID LEUKAEMIA
     Dosage: HIGH-DOSE
     Route: 042
     Dates: start: 201205
  3. POSACONAZOLE [Concomitant]
     Active Substance: POSACONAZOLE
     Indication: ANTIFUNGAL PROPHYLAXIS
     Route: 065
     Dates: start: 201205
  4. IDARUBICIN [Suspect]
     Active Substance: IDARUBICIN
     Indication: CHLOROMA
  5. IDARUBICIN [Suspect]
     Active Substance: IDARUBICIN
     Indication: ACUTE MYELOID LEUKAEMIA
     Dosage: HIGH-DOSE
     Route: 042
     Dates: start: 201205
  6. ETOPOSIDE. [Suspect]
     Active Substance: ETOPOSIDE
     Indication: ACUTE MYELOID LEUKAEMIA
     Dosage: HIGH-DOSE
     Route: 042
     Dates: start: 201205
  7. ARA-C [Suspect]
     Active Substance: CYTARABINE
     Indication: CHLOROMA

REACTIONS (2)
  - Aspergillus infection [Fatal]
  - Sepsis [Fatal]
